FAERS Safety Report 6523048-X (Version None)
Quarter: 2009Q4

REPORT INFORMATION
  Report Type: 
  Country: None (occurrence: None)
  Receive Date: 20091222
  Receipt Date: 20091211
  Transmission Date: 20100525
  Serious: Yes (Other)
  Sender: FDA-Public Use
  Company Number: 234235J09USA

PATIENT
  Age: 54 Year
  Sex: Female
  Weight: 57 kg

DRUGS (4)
  1. REBIF [Suspect]
     Indication: MULTIPLE SCLEROSIS
     Dosage: 44 MCG, 3 IN 1 WEEKS, SUBCUTANEOUS; 22 MCG, SUBCUTANEOUS
     Route: 058
     Dates: start: 20060907, end: 20080101
  2. LUNESTA [Concomitant]
  3. AMANTADINE HCL [Concomitant]
  4. MIRALAX [Concomitant]

REACTIONS (3)
  - BENIGN PANCREATIC NEOPLASM [None]
  - PAIN [None]
  - PANCREATIC CYST [None]
